FAERS Safety Report 7569658-2 (Version None)
Quarter: 2011Q2

REPORT INFORMATION
  Report Type: 
  Country: None (occurrence: None)
  Receive Date: 20110617
  Receipt Date: 20110608
  Transmission Date: 20111010
  Serious: Yes (Hospitalization, Other)
  Sender: FDA-Public Use
  Company Number: 2011SP026515

PATIENT
  Sex: Female
  Weight: 62 kg

DRUGS (5)
  1. SEROQUEL [Concomitant]
  2. MIRTAZAPINE [Suspect]
     Indication: DEPRESSION
     Dosage: 45 MG;QD 45 MG;QD 30 MG;QD 15 MG;QD
  3. MIRTAZAPINE [Suspect]
     Indication: DEPRESSION
     Dosage: 45 MG;QD 45 MG;QD 30 MG;QD 15 MG;QD
  4. MIRTAZAPINE [Suspect]
     Indication: DEPRESSION
     Dosage: 45 MG;QD 45 MG;QD 30 MG;QD 15 MG;QD
  5. MIRTAZAPINE [Suspect]
     Indication: DEPRESSION
     Dosage: 45 MG;QD 45 MG;QD 30 MG;QD 15 MG;QD

REACTIONS (4)
  - PREGNANCY [None]
  - FOETAL GROWTH RESTRICTION [None]
  - INTRA-UTERINE DEATH [None]
  - DRUG EXPOSURE DURING PREGNANCY [None]
